FAERS Safety Report 4520095-4 (Version None)
Quarter: 2004Q4

REPORT INFORMATION
  Report Type: 
  Country: None (occurrence: None)
  Receive Date: 20041029
  Receipt Date: 20040806
  Transmission Date: 20050328
  Serious: No
  Sender: FDA-Public Use
  Company Number: 2004-119204-NL

PATIENT
  Age: 17 Year
  Sex: Female
  Weight: 56.8 kg

DRUGS (6)
  1. NUVARING [Suspect]
     Indication: CONTRACEPTION
     Dosage: 1 DF DAILY, VAGINAL
     Route: 067
     Dates: start: 20040716
  2. LITHIUM [Concomitant]
  3. WELLBUTRIN [Concomitant]
  4. NULEV (HYOSCYAMINE) [Concomitant]
  5. ZELNORM [Concomitant]
  6. PEPTO-BISMOL [Concomitant]

REACTIONS (5)
  - ABDOMINAL PAIN UPPER [None]
  - CONSTIPATION [None]
  - DIARRHOEA [None]
  - NAUSEA [None]
  - VOMITING [None]
